FAERS Safety Report 6075946-1 (Version None)
Quarter: 2009Q1

REPORT INFORMATION
  Report Type: 
  Country: None (occurrence: None)
  Receive Date: 20090212
  Receipt Date: 20090128
  Transmission Date: 20090719
  Serious: Yes (Hospitalization)
  Sender: FDA-Public Use
  Company Number: JP-PFIZER INC-2009163435

PATIENT

DRUGS (4)
  1. ATORVASTATIN CALCIUM [Suspect]
     Indication: HYPERCHOLESTEROLAEMIA
     Dosage: 5 MG, 1X/DAY
     Route: 048
     Dates: start: 20060401
  2. THEO-DUR [Suspect]
     Dosage: 200 MG, 1X/DAY
     Route: 048
     Dates: start: 20060401
  3. DEPAS [Concomitant]
     Dosage: UNK
     Route: 048
     Dates: start: 20060401
  4. TERNELIN [Concomitant]
     Dosage: UNK
     Route: 048
     Dates: start: 20060401

REACTIONS (2)
  - CHEST PAIN [None]
  - LARGE INTESTINE CARCINOMA [None]
